FAERS Safety Report 12615780 (Version 2)
Quarter: 2016Q3

REPORT INFORMATION
  Report Type: Spontaneous
  Country: US (occurrence: US)
  Receive Date: 20160802
  Receipt Date: 20160811
  Transmission Date: 20161109
  Serious: Yes (Life-Threatening, Hospitalization, Other)
  Sender: FDA-Public Use
  Company Number: US-BAYER-2016-148368

PATIENT
  Sex: Male

DRUGS (1)
  1. MAGNEVIST [Suspect]
     Active Substance: GADOPENTETATE DIMEGLUMINE
     Dosage: 17 ML, ONCE
     Route: 042

REACTIONS (4)
  - Heart rate decreased [None]
  - Loss of consciousness [None]
  - Cardio-respiratory arrest [None]
  - Respiratory rate decreased [None]
